FAERS Safety Report 13547874 (Version 1)
Quarter: 2017Q2

REPORT INFORMATION
  Report Type: Spontaneous
  Country: FR (occurrence: FR)
  Receive Date: 20170516
  Receipt Date: 20170516
  Transmission Date: 20170830
  Serious: Yes (Hospitalization)
  Sender: FDA-Public Use
  Company Number: FR-CONCORDIA PHARMACEUTICALS INC.-GSH201705-002912

PATIENT
  Age: 92 Year
  Sex: Male

DRUGS (14)
  1. COUMADIN [Concomitant]
     Active Substance: WARFARIN SODIUM
     Dates: start: 2013, end: 20170416
  2. CLARADOL [Concomitant]
     Active Substance: ACETAMINOPHEN
  3. DOLIPRANE [Concomitant]
     Active Substance: ACETAMINOPHEN
  4. ATORVASTATIN [Suspect]
     Active Substance: ATORVASTATIN
     Indication: PROPHYLAXIS
     Dates: start: 2013, end: 20170416
  5. FLUTAMIDE. [Suspect]
     Active Substance: FLUTAMIDE
     Indication: PROSTATE CANCER
     Route: 048
     Dates: start: 2013, end: 20160416
  6. NEBILOX [Concomitant]
     Active Substance: NEBIVOLOL HYDROCHLORIDE
     Dates: start: 2013
  7. LASILIX [Concomitant]
     Active Substance: FUROSEMIDE
     Dates: start: 2013
  8. TEMESTA [Concomitant]
     Active Substance: LORAZEPAM
  9. ALFUZOSIN EXTENDED-RELEASE TABLET 10 MG [Suspect]
     Active Substance: ALFUZOSIN
     Indication: PROSTATE CANCER
     Route: 048
     Dates: start: 2013, end: 20170416
  10. MOPRAL [Suspect]
     Active Substance: OMEPRAZOLE SODIUM
     Indication: PRODUCT USED FOR UNKNOWN INDICATION
     Route: 048
     Dates: start: 2013, end: 20170416
  11. GLYCERYL TRINITRATE [Concomitant]
     Active Substance: NITROGLYCERIN
     Dates: start: 2013, end: 20170420
  12. IKOREL [Concomitant]
     Active Substance: NICORANDIL
     Dates: start: 2013, end: 20170420
  13. DIFFU K [Concomitant]
     Active Substance: POTASSIUM CHLORIDE
     Dates: start: 2013, end: 20170417
  14. TRIATEC [Concomitant]
     Active Substance: RAMIPRIL
     Dates: start: 2013, end: 20170420

REACTIONS (2)
  - Hypocalcaemia [Recovering/Resolving]
  - Hypomagnesaemia [Recovered/Resolved]

NARRATIVE: CASE EVENT DATE: 20170417
